FAERS Safety Report 10165019 (Version 2)
Quarter: 2014Q4

REPORT INFORMATION
  Report Type: Spontaneous
  Country: US (occurrence: US)
  Receive Date: 20140510
  Receipt Date: 20141205
  Transmission Date: 20150528
  Serious: No
  Sender: FDA-Public Use
  Company Number: US-BRISTOL-MYERS SQUIBB COMPANY-20228557

PATIENT
  Age: 68 Year
  Sex: Female
  Weight: 68.03 kg

DRUGS (4)
  1. BYDUREON [Suspect]
     Active Substance: EXENATIDE
     Indication: TYPE 2 DIABETES MELLITUS
     Dosage: STOP DATE: SEP2012?RESTART MAY2013 TO UNK?RESTARTED UNK TO 13FEB2014:
     Route: 058
     Dates: start: 201201
  2. VITAMIN D [Concomitant]
     Active Substance: CHOLECALCIFEROL
  3. PROZAC [Concomitant]
     Active Substance: FLUOXETINE HYDROCHLORIDE
  4. ASTELIN [Concomitant]
     Active Substance: AZELASTINE HYDROCHLORIDE

REACTIONS (4)
  - Injection site pain [Recovered/Resolved]
  - Underdose [Unknown]
  - Injection site extravasation [Recovered/Resolved]
  - Injection site mass [Recovered/Resolved]

NARRATIVE: CASE EVENT DATE: 2012
